FAERS Safety Report 6915412-1 (Version None)
Quarter: 2010Q3

REPORT INFORMATION
  Report Type: 
  Country: None (occurrence: None)
  Receive Date: 20100809
  Receipt Date: 20100426
  Transmission Date: 20110219
  Serious: No
  Sender: FDA-Public Use
  Company Number: US-ABBOTT-10P-163-0641597-00

PATIENT
  Sex: Female
  Weight: 86.26 kg

DRUGS (7)
  1. DEPAKOTE ER [Suspect]
     Indication: CONVULSION PROPHYLAXIS
     Dates: start: 20100101
  2. ALLEGRA [Concomitant]
     Indication: HYPERSENSITIVITY
  3. PHENOBARBITAL [Concomitant]
     Indication: CONVULSION
  4. FLONASE [Concomitant]
     Indication: HYPERSENSITIVITY
  5. PRILOSEC [Concomitant]
     Indication: GASTROOESOPHAGEAL REFLUX DISEASE
  6. HYZAAR [Concomitant]
     Indication: HYPERTENSION
  7. CELEXA [Concomitant]
     Indication: DEPRESSION

REACTIONS (2)
  - ARTHRALGIA [None]
  - JOINT SWELLING [None]
